FAERS Safety Report 4925791-2 (Version None)
Quarter: 2006Q1

REPORT INFORMATION
  Report Type: 
  Country: None (occurrence: None)
  Receive Date: 20060228
  Receipt Date: 20050322
  Transmission Date: 20060701
  Serious: No
  Sender: FDA-Public Use
  Company Number: US-GLAXOSMITHKLINE-A0550857A

PATIENT
  Sex: Female

DRUGS (2)
  1. LAMICTAL [Suspect]
     Indication: BIPOLAR DISORDER
     Dosage: 150MG TWICE PER DAY
     Route: 048
  2. ATIVAN [Concomitant]

REACTIONS (6)
  - ASTHENIA [None]
  - DYSARTHRIA [None]
  - HYPERTENSION [None]
  - HYPOAESTHESIA [None]
  - MUSCLE FATIGUE [None]
  - PHOTOPSIA [None]
